FAERS Safety Report 20996699 (Version 2)
Quarter: 2022Q3

REPORT INFORMATION
  Report Type: Spontaneous
  Country: US (occurrence: US)
  Receive Date: 20220623
  Receipt Date: 20220813
  Transmission Date: 20221027
  Serious: No
  Sender: FDA-Public Use
  Company Number: US-JNJFOC-20220632079

PATIENT
  Age: 5 Decade
  Sex: Female

DRUGS (12)
  1. ELMIRON [Suspect]
     Active Substance: PENTOSAN POLYSULFATE SODIUM
     Indication: Cystitis interstitial
     Route: 048
  2. ELMIRON [Suspect]
     Active Substance: PENTOSAN POLYSULFATE SODIUM
     Dosage: DRUG START DATE WAS 2001
     Route: 048
  3. ELMIRON [Suspect]
     Active Substance: PENTOSAN POLYSULFATE SODIUM
     Dosage: DRUG START DATE WAS FEB-2002, 100 MG THRICE A DAY
     Route: 048
     Dates: end: 2017
  4. LISINOPRIL [Concomitant]
     Active Substance: LISINOPRIL
     Indication: Hypertension
     Dates: start: 2012
  5. METOPROLOL [Concomitant]
     Active Substance: METOPROLOL
     Indication: Hypertension
     Dates: start: 2012
  6. ATORVASTATIN [Concomitant]
     Active Substance: ATORVASTATIN
     Indication: Hypertension
     Dates: start: 2012
  7. ASPIRIN [Concomitant]
     Active Substance: ASPIRIN
     Indication: Thrombosis
     Dates: start: 2017
  8. Diazopam [Concomitant]
     Indication: Cystitis interstitial
     Dates: start: 2002, end: 2017
  9. Hydoxyzine [Concomitant]
     Indication: Cystitis interstitial
     Dates: start: 2012, end: 2017
  10. GABAPENTIN [Concomitant]
     Active Substance: GABAPENTIN
     Indication: Cystitis interstitial
     Dates: start: 2012, end: 2017
  11. COUMADIN [Concomitant]
     Active Substance: WARFARIN SODIUM
     Indication: Thrombosis
     Dates: start: 2017, end: 2019
  12. COUMADIN [Concomitant]
     Active Substance: WARFARIN SODIUM
     Indication: Pulmonary embolism

REACTIONS (5)
  - Delayed dark adaptation [Unknown]
  - Vision blurred [Unknown]
  - Visual impairment [Unknown]
  - Nausea [Unknown]
  - Alopecia [Unknown]

NARRATIVE: CASE EVENT DATE: 20000101
